FAERS Safety Report 24981997 (Version 1)
Quarter: 2025Q1

REPORT INFORMATION
  Report Type: Other
  Country: US (occurrence: US)
  Receive Date: 20250218
  Receipt Date: 20250218
  Transmission Date: 20250408
  Serious: Yes (Hospitalization, Other)
  Sender: Apozeal Pharmaceuticals
  Company Number: US-Apozeal Pharmaceuticals-2171290

PATIENT
  Age: 12 Year
  Sex: Female

DRUGS (2)
  1. RISPERIDONE [Suspect]
     Active Substance: RISPERIDONE
     Indication: Psychotic disorder
  2. OLANZAPINE [Suspect]
     Active Substance: OLANZAPINE

REACTIONS (10)
  - Psychotic symptom [Recovering/Resolving]
  - Tremor [Recovering/Resolving]
  - Urinary incontinence [Recovering/Resolving]
  - Muscle rigidity [Recovering/Resolving]
  - Mutism [Recovering/Resolving]
  - Posturing [Recovering/Resolving]
  - Hypophagia [Recovering/Resolving]
  - Freezing phenomenon [Recovering/Resolving]
  - Aggression [Recovering/Resolving]
  - Condition aggravated [Recovering/Resolving]
